FAERS Safety Report 16015184 (Version 3)
Quarter: 2019Q3

REPORT INFORMATION
  Report Type: Spontaneous
  Country: CO (occurrence: CO)
  Receive Date: 20190228
  Receipt Date: 20190916
  Transmission Date: 20191004
  Serious: Yes (Hospitalization, Other)
  Sender: FDA-Public Use
  Company Number: CO-AMGEN-COLSP2016084903

PATIENT
  Age: 72 Year
  Sex: Female

DRUGS (8)
  1. ENBREL [Suspect]
     Active Substance: ETANERCEPT
     Indication: RHEUMATOID ARTHRITIS
     Dosage: 50 MILLIGRAM, QWK
     Route: 058
     Dates: start: 2013
  2. HYDROCODONE BITARTRATE AND ACETAMINOPHEN [Concomitant]
     Active Substance: ACETAMINOPHEN\HYDROCODONE BITARTRATE
     Indication: HEADACHE
     Dosage: UNK
  3. FOLIC ACID. [Concomitant]
     Active Substance: FOLIC ACID
     Dosage: UNK
     Dates: start: 2014
  4. DOLEX FORTE [Concomitant]
     Active Substance: ACETAMINOPHEN\CAFFEINE
     Dosage: UNK UNK, WEEKLY
  5. ENBREL [Suspect]
     Active Substance: ETANERCEPT
     Dosage: 50 MILLIGRAM, QWK
     Route: 058
     Dates: start: 2014
  6. METHOTREXATE. [Concomitant]
     Active Substance: METHOTREXATE
     Dosage: 4 DOSAGE FORM
     Route: 048
     Dates: start: 2014
  7. DOLEX FORTE [Concomitant]
     Active Substance: ACETAMINOPHEN\CAFFEINE
     Dosage: UNK UNK, WEEKLY
  8. DOLEX FORTE [Concomitant]
     Active Substance: ACETAMINOPHEN\CAFFEINE
     Dosage: UNK UNK, WEEKLY

REACTIONS (14)
  - Arthritis [Recovering/Resolving]
  - Fall [Unknown]
  - Bronchitis [Recovered/Resolved]
  - Nodule [Not Recovered/Not Resolved]
  - Gait inability [Not Recovered/Not Resolved]
  - Pain [Not Recovered/Not Resolved]
  - Neck pain [Recovering/Resolving]
  - Alopecia [Unknown]
  - Swelling [Not Recovered/Not Resolved]
  - Finger deformity [Unknown]
  - Saliva altered [Not Recovered/Not Resolved]
  - Cough [Not Recovered/Not Resolved]
  - Drug ineffective [Not Recovered/Not Resolved]
  - Joint effusion [Not Recovered/Not Resolved]

NARRATIVE: CASE EVENT DATE: 2015
